FAERS Safety Report 17108656 (Version 1)
Quarter: 2019Q4

REPORT INFORMATION
  Report Type: Spontaneous
  Country: UG (occurrence: UG)
  Receive Date: 20191203
  Receipt Date: 20191203
  Transmission Date: 20200122
  Serious: Yes (Other)
  Sender: FDA-Public Use
  Company Number: UG-VIIV HEALTHCARE LIMITED-KE2019EME188571

PATIENT

DRUGS (2)
  1. INTRAUTERINE DEVICE [Suspect]
     Active Substance: INTRAUTERINE DEVICE
     Indication: PRODUCT USED FOR UNKNOWN INDICATION
     Dosage: UNK
  2. DOLUTEGRAVIR [Suspect]
     Active Substance: DOLUTEGRAVIR
     Indication: PRODUCT USED FOR UNKNOWN INDICATION
     Dosage: UNK

REACTIONS (5)
  - Hypertension [Unknown]
  - Thirst [Unknown]
  - Weight increased [Unknown]
  - Haemorrhage [Unknown]
  - Headache [Unknown]
